FAERS Safety Report 9742696 (Version 3)
Quarter: 2015Q3

REPORT INFORMATION
  Report Type: Spontaneous
  Country: US (occurrence: US)
  Receive Date: 20131210
  Receipt Date: 20150804
  Transmission Date: 20151125
  Serious: No
  Sender: FDA-Public Use
  Company Number: US-GILEAD-2009-0025299

PATIENT
  Age: 47 Year
  Sex: Female
  Weight: 53.52 kg

DRUGS (10)
  1. QVAR [Concomitant]
     Active Substance: BECLOMETHASONE DIPROPIONATE
  2. VIAGRA [Concomitant]
     Active Substance: SILDENAFIL CITRATE
  3. PARACETAMOL/HYDROCODONE BITARTRATE [Concomitant]
  4. PRILOSEC [Concomitant]
     Active Substance: OMEPRAZOLE MAGNESIUM
  5. DIGOXIN. [Concomitant]
     Active Substance: DIGOXIN
  6. LETAIRIS [Suspect]
     Active Substance: AMBRISENTAN
     Indication: PULMONARY ARTERIAL HYPERTENSION
     Route: 048
     Dates: start: 20091029, end: 20091119
  7. FLEXERIL [Concomitant]
     Active Substance: CYCLOBENZAPRINE HYDROCHLORIDE
  8. IPRATROPIUM BROMIDE/SALBUTAMOL SULFATE [Concomitant]
  9. LASIX [Concomitant]
     Active Substance: FUROSEMIDE
  10. WARFARIN [Concomitant]
     Active Substance: WARFARIN

REACTIONS (5)
  - Rash [Unknown]
  - Pruritus [Unknown]
  - Swelling [Unknown]
  - Somnolence [Unknown]
  - Erythema [Unknown]
